FAERS Safety Report 8249891-7 (Version None)
Quarter: 2012Q2

REPORT INFORMATION
  Report Type: 
  Country: None (occurrence: None)
  Receive Date: 20120402
  Receipt Date: 20120329
  Transmission Date: 20120825
  Serious: Yes (Death, Other)
  Sender: FDA-Public Use
  Company Number: PHHY2011NZ107252

PATIENT
  Sex: Male

DRUGS (2)
  1. CLOZARIL [Suspect]
     Indication: SCHIZOPHRENIA
     Route: 048
     Dates: start: 20110823
  2. CLOZARIL [Suspect]
     Dosage: 62.5 MG, NOCTE
     Route: 048
     Dates: start: 20111201

REACTIONS (13)
  - CARDIAC ARREST [None]
  - UNRESPONSIVE TO STIMULI [None]
  - PARKINSON'S DISEASE [None]
  - HEART RATE IRREGULAR [None]
  - HAEMATOCRIT DECREASED [None]
  - RED BLOOD CELL COUNT DECREASED [None]
  - PULSE PRESSURE DECREASED [None]
  - DYSPNOEA [None]
  - HYPERHIDROSIS [None]
  - MYOCARDIAL INFARCTION [None]
  - FATIGUE [None]
  - ANXIETY [None]
  - LOSS OF CONSCIOUSNESS [None]
